FAERS Safety Report 9780865 (Version 1)
Quarter: 2013Q4

REPORT INFORMATION
  Report Type: Spontaneous
  Country: AU (occurrence: AU)
  Receive Date: 20131224
  Receipt Date: 20131224
  Transmission Date: 20140711
  Serious: Yes (Other)
  Sender: FDA-Public Use
  Company Number: PHHY2013AU149570

PATIENT
  Sex: Female

DRUGS (2)
  1. CLOZAPINE [Suspect]
     Dosage: UNK
  2. SOLIAN [Suspect]
     Dosage: UNK

REACTIONS (5)
  - Amnesia [Unknown]
  - Angina pectoris [Unknown]
  - Euphoric mood [Unknown]
  - Sedation [Unknown]
  - Weight increased [Unknown]
